FAERS Safety Report 8815368 (Version 2)
Quarter: 2012Q4

REPORT INFORMATION
  Report Type: Report from Study
  Country: CO (occurrence: CO)
  Receive Date: 20120928
  Receipt Date: 20121003
  Transmission Date: 20130627
  Serious: Yes (Other)
  Sender: FDA-Public Use
  Company Number: CO-VERTEX PHARMACEUTICAL INC.-2012-021923

PATIENT
  Age: 50 Year
  Sex: Male

DRUGS (3)
  1. VX-950 [Suspect]
     Indication: HEPATITIS C
     Dosage: UNK
     Dates: start: 20120913
  2. RIBAVIRIN [Concomitant]
     Dosage: UNK
     Route: 065
  3. PEGINTERFERON ALFA [Concomitant]
     Dosage: Dosage Form: Unknown
     Route: 065

REACTIONS (2)
  - Rash [Recovered/Resolved]
  - Pruritus [Unknown]
